FAERS Safety Report 18573883 (Version 1)
Quarter: 2020Q4

REPORT INFORMATION
  Report Type: Spontaneous
  Country: US (occurrence: US)
  Receive Date: 20201203
  Receipt Date: 20201203
  Transmission Date: 20210114
  Serious: No
  Sender: FDA-Public Use
  Company Number: US-BAYER-2020-263357

PATIENT
  Age: 80 Year
  Sex: Female

DRUGS (1)
  1. MIRALAX [Suspect]
     Active Substance: POLYETHYLENE GLYCOL 3350
     Dosage: 1 CAPFUL IN 4 OR 5OZ COLD WATER
     Route: 048
     Dates: start: 202011

REACTIONS (2)
  - Incorrect product administration duration [Unknown]
  - Product outer packaging issue [None]

NARRATIVE: CASE EVENT DATE: 202011
